FAERS Safety Report 10632907 (Version 2)
Quarter: 2014Q4

REPORT INFORMATION
  Report Type: Spontaneous
  Country: US (occurrence: US)
  Receive Date: 20141205
  Receipt Date: 20141205
  Transmission Date: 20150529
  Serious: No
  Sender: FDA-Public Use
  Company Number: US-BRISTOL-MYERS SQUIBB COMPANY-21394788

PATIENT
  Age: 53 Year
  Sex: Female

DRUGS (15)
  1. SUDAFED [Concomitant]
     Active Substance: PSEUDOEPHEDRINE HYDROCHLORIDE
     Route: 048
     Dates: start: 20140826
  2. CLINORIL [Concomitant]
     Active Substance: SULINDAC
     Route: 048
  3. FOLIC ACID. [Concomitant]
     Active Substance: FOLIC ACID
     Dates: start: 20120126
  4. IMITREX [Concomitant]
     Active Substance: SUMATRIPTAN\SUMATRIPTAN SUCCINATE
     Indication: MIGRAINE
     Dosage: INJECT 6MG SQ AT ONSET OF MIGRAINE SYMPTOMS, REPEAT POST 1HR, MAX DOSE 12MG/24HR
     Route: 058
     Dates: start: 20130426
  5. IMITREX [Concomitant]
     Active Substance: SUMATRIPTAN\SUMATRIPTAN SUCCINATE
     Indication: HEADACHE
     Dosage: INJECT 6MG SQ AT ONSET OF MIGRAINE SYMPTOMS, REPEAT POST 1HR, MAX DOSE 12MG/24HR
     Route: 058
     Dates: start: 20130426
  6. DELTASONE [Concomitant]
     Active Substance: PREDNISONE
     Dosage: TAKE 5 TABLETS FOR THREE DAYS, THEN DECREASE BY ONE TABLET EVERY THREE DAYS UNTIL GONE.
     Dates: start: 20140515
  7. IMITREX [Concomitant]
     Active Substance: SUMATRIPTAN\SUMATRIPTAN SUCCINATE
     Indication: MIGRAINE
     Dosage: 1 TAB AT ONSET OF HEADACHE. MAY REPEAT IN TWO HOURS IF NEEDED. MAX OF 2 TABLETS IN 24 HOURS.
     Route: 048
     Dates: start: 20140807
  8. AMBIEN [Concomitant]
     Active Substance: ZOLPIDEM TARTRATE
     Dosage: 1 TAB AT NIGHT
     Route: 048
     Dates: start: 20140624
  9. PLAQUENIL [Concomitant]
     Active Substance: HYDROXYCHLOROQUINE SULFATE
     Dates: start: 20120503
  10. IMITREX [Concomitant]
     Active Substance: SUMATRIPTAN\SUMATRIPTAN SUCCINATE
     Indication: HEADACHE
     Dosage: 1 TAB AT ONSET OF HEADACHE. MAY REPEAT IN TWO HOURS IF NEEDED. MAX OF 2 TABLETS IN 24 HOURS.
     Route: 048
     Dates: start: 20140807
  11. CATAPRES [Concomitant]
     Active Substance: CLONIDINE HYDROCHLORIDE
     Dosage: AT BEDTIME
     Route: 048
     Dates: start: 20140121
  12. ORENCIA [Suspect]
     Active Substance: ABATACEPT
     Indication: RHEUMATOID ARTHRITIS
     Dosage: LOT#:4A83288?EXP DATE:OCT16?LOT#:4D81648?EXP DATE:DEC16?LOT#:4D78200?EXP DATE:JAN17
     Route: 042
     Dates: start: 201301
  13. ATIVAN [Concomitant]
     Active Substance: LORAZEPAM
     Indication: ANXIETY
     Route: 048
     Dates: start: 20140801
  14. PERCOCET [Concomitant]
     Active Substance: ACETAMINOPHEN\OXYCODONE HYDROCHLORIDE
     Indication: PAIN
     Route: 048
     Dates: start: 20140515
  15. METHOTREXATE [Concomitant]
     Active Substance: METHOTREXATE
     Dates: start: 20120126

REACTIONS (2)
  - Product quality issue [Unknown]
  - Drug administration error [Unknown]
